FAERS Safety Report 18227475 (Version 1)
Quarter: 2020Q3

REPORT INFORMATION
  Report Type: Spontaneous
  Country: US (occurrence: US)
  Receive Date: 20200903
  Receipt Date: 20200903
  Transmission Date: 20201103
  Serious: No
  Sender: FDA-Public Use
  Company Number: US-VELOXIS PHARMACEUTICALS, INC.-2019VELUS1629

PATIENT
  Age: 26 Year
  Sex: Male

DRUGS (1)
  1. ENVARSUS XR [Suspect]
     Active Substance: TACROLIMUS
     Indication: HEART TRANSPLANT
     Dosage: 0.75 MG, QD
     Route: 048

REACTIONS (9)
  - Disorientation [Unknown]
  - Palpitations [Unknown]
  - Confusional state [Unknown]
  - Intentional product use issue [Unknown]
  - Tunnel vision [Unknown]
  - Migraine [Unknown]
  - Feeling abnormal [Unknown]
  - Dizziness [Unknown]
  - Nausea [Unknown]
